FAERS Safety Report 20578444 (Version 1)
Quarter: 2022Q1

REPORT INFORMATION
  Report Type: Spontaneous
  Country: BG (occurrence: BG)
  Receive Date: 20220310
  Receipt Date: 20220310
  Transmission Date: 20220423
  Serious: Yes (Other)
  Sender: FDA-Public Use
  Company Number: BG-LUPIN PHARMACEUTICALS INC.-2022-03293

PATIENT
  Age: 36 Year
  Sex: Male

DRUGS (3)
  1. METHYLPREDNISOLONE [Suspect]
     Active Substance: METHYLPREDNISOLONE
     Indication: Tolosa-Hunt syndrome
     Dosage: 500 MG
     Route: 042
  2. METHYLPREDNISOLONE [Suspect]
     Active Substance: METHYLPREDNISOLONE
     Dosage: SMALLER DOSES- 5.5 G CUMULATIVE DOSE
     Route: 042
  3. METHYLPREDNISOLONE [Suspect]
     Active Substance: METHYLPREDNISOLONE
     Dosage: 30 MG, QD (UNTIL 6TTH MONTH AFTER BEGINNING OF THERAPY)
     Route: 030

REACTIONS (3)
  - Steroid diabetes [Recovering/Resolving]
  - Insulin resistance [Unknown]
  - Weight increased [Recovering/Resolving]
